FAERS Safety Report 4389629-7 (Version None)
Quarter: 2004Q2

REPORT INFORMATION
  Report Type: 
  Country: None (occurrence: None)
  Receive Date: 20040629
  Receipt Date: 20040102
  Transmission Date: 20050107
  Serious: Yes (Hospitalization)
  Sender: FDA-Public Use
  Company Number: US-JNJFOC-20040100178

PATIENT
  Age: 77 Year
  Sex: Male
  Weight: 99.9 kg

DRUGS (6)
  1. DURAGESIC [Suspect]
     Indication: PAIN
     Dates: start: 20031125
  2. ATIVAN [Suspect]
     Indication: ANXIETY
     Dates: start: 20031110
  3. PTK787/ ZK222584 VS PLACEBO (ALL OTHER THERAPEUTIC PRODUCTS) [Suspect]
     Indication: COLON CANCER
     Dosage: 1250 MG
     Dates: start: 20031208, end: 20031212
  4. OXALIPLATIN (OXALIPLATIN) [Concomitant]
  5. FLUOROURACIL [Concomitant]
  6. LEUCOVORIN CALCIUM [Concomitant]

REACTIONS (3)
  - CONDITION AGGRAVATED [None]
  - CONFUSIONAL STATE [None]
  - HALLUCINATION [None]
